FAERS Safety Report 6558837-9 (Version None)
Quarter: 2010Q1

REPORT INFORMATION
  Report Type: 
  Country: None (occurrence: None)
  Receive Date: 20100129
  Receipt Date: 20100126
  Transmission Date: 20100710
  Serious: Yes (Death)
  Sender: FDA-Public Use
  Company Number: PHHY2010JP03306

PATIENT

DRUGS (18)
  1. RASILEZ [Suspect]
     Indication: CARDIAC FAILURE
     Dosage: UNK
     Route: 048
     Dates: start: 20091214, end: 20091219
  2. ATELEC [Concomitant]
     Dosage: 2 DF, UNK
     Route: 048
  3. TAKEPRON [Concomitant]
     Dosage: 1 DF, UNK
     Route: 048
  4. MUCOSTA [Concomitant]
     Dosage: 3 DF, UNK
     Route: 048
  5. OLMETEC [Concomitant]
     Dosage: 20 MG, UNK
     Route: 048
  6. MEXITIL [Concomitant]
     Dosage: 3 DF, UNK
     Route: 048
  7. ARTIST [Concomitant]
     Dosage: 5 MG, UNK
     Route: 048
  8. ONEALFA [Concomitant]
     Dosage: 1 UG, UNK
     Route: 048
  9. GLAKAY [Concomitant]
     Dosage: 3 DF, UNK
     Route: 048
  10. AZULFIDINE [Concomitant]
     Dosage: 500 MG, UNK
     Route: 048
  11. POLLAKISU [Concomitant]
     Route: 048
  12. SPIROPENT [Concomitant]
     Route: 048
  13. LASIX [Concomitant]
     Route: 048
  14. ALDACTONE [Concomitant]
     Route: 048
  15. PREDONINE [Concomitant]
     Route: 048
  16. SELBEX [Concomitant]
     Route: 048
  17. DOPAMINE HYDROCHLORIDE [Concomitant]
  18. HANP [Concomitant]

REACTIONS (1)
  - DEATH [None]
